FAERS Safety Report 11675187 (Version 1)
Quarter: 2015Q4

REPORT INFORMATION
  Report Type: Spontaneous
  Country: FI (occurrence: FI)
  Receive Date: 20151028
  Receipt Date: 20151028
  Transmission Date: 20160304
  Serious: Yes (Life-Threatening, Hospitalization)
  Sender: FDA-Public Use
  Company Number: FI-ABBVIE-15K-055-1488212-00

PATIENT
  Age: 69 Year
  Sex: Female

DRUGS (16)
  1. CARDACE [Concomitant]
     Active Substance: RAMIPRIL
     Indication: ISCHAEMIC CARDIOMYOPATHY
     Route: 048
  2. PROLIA [Concomitant]
     Active Substance: DENOSUMAB
     Indication: ISCHAEMIC CARDIOMYOPATHY
     Route: 058
  3. CALCICHEW-D3 [Concomitant]
     Active Substance: CALCIUM\CHOLECALCIFEROL
     Indication: PRODUCT USED FOR UNKNOWN INDICATION
     Dosage: 500MG/5MICROGRAM
  4. EMGESAN [Concomitant]
     Indication: PRODUCT USED FOR UNKNOWN INDICATION
  5. PRIMASPAN [Concomitant]
     Indication: ISCHAEMIC CARDIOMYOPATHY
     Route: 048
  6. SPIRIX [Concomitant]
     Active Substance: SPIRONOLACTONE
     Indication: ISCHAEMIC CARDIOMYOPATHY
     Route: 048
  7. EMCONCOR CHF [Concomitant]
     Indication: ISCHAEMIC CARDIOMYOPATHY
     Route: 048
  8. OCULAC [Concomitant]
     Indication: PRODUCT USED FOR UNKNOWN INDICATION
     Dosage: 1 ONE TO TO FOUR TIMES A DAY
  9. PRECOSA [Concomitant]
     Indication: PRODUCT USED FOR UNKNOWN INDICATION
  10. AMOXICILLIN SANDOZ [Concomitant]
     Active Substance: AMOXICILLIN
     Indication: PRODUCT USED FOR UNKNOWN INDICATION
     Dosage: 2 TABLETS, THREE TIMES A DAY UNTIL  21 OCT 2015
  11. HUMIRA [Suspect]
     Active Substance: ADALIMUMAB
     Indication: RHEUMATOID ARTHRITIS
     Route: 058
     Dates: start: 200512, end: 2015
  12. VISCOTEARS [Concomitant]
     Active Substance: CARBOMER
     Indication: PRODUCT USED FOR UNKNOWN INDICATION
     Dosage: AT NIGHT
  13. PARA [Concomitant]
     Indication: PRODUCT USED FOR UNKNOWN INDICATION
     Dosage: 1-2 ONE
  14. TREXAN [Concomitant]
     Active Substance: METHOTREXATE SODIUM
     Indication: RHEUMATOID ARTHRITIS
     Route: 048
  15. MATRIFOLIN [Concomitant]
     Indication: PRODUCT USED FOR UNKNOWN INDICATION
  16. SIMVASTATIN ACTAVIS [Concomitant]
     Active Substance: SIMVASTATIN
     Indication: ISCHAEMIC CARDIOMYOPATHY
     Route: 048

REACTIONS (8)
  - Diarrhoea [Recovered/Resolved]
  - Pneumonia aspiration [Unknown]
  - Ventricular fibrillation [Unknown]
  - Fatigue [Unknown]
  - Listeria sepsis [Not Recovered/Not Resolved]
  - Cardiac failure [Unknown]
  - General physical health deterioration [Recovering/Resolving]
  - Myocardial infarction [Unknown]

NARRATIVE: CASE EVENT DATE: 201109
